FAERS Safety Report 7150646-5 (Version None)
Quarter: 2010Q4

REPORT INFORMATION
  Report Type: 
  Country: None (occurrence: None)
  Receive Date: 20101124
  Receipt Date: 20101108
  Transmission Date: 20110411
  Serious: Yes (Life-Threatening, Other)
  Sender: FDA-Public Use
  Company Number: DSA_44374_2010

PATIENT
  Age: 62 Year
  Sex: Male

DRUGS (4)
  1. ADIZEM (ADIZEM-SR - DILTIAZEM HYDROCHLORIDE) 2.5 G (NOT SPECIFIED) [Suspect]
     Indication: PRODUCT USED FOR UNKNOWN INDICATION
     Dosage: 2.5 G 1X ORAL
     Route: 048
  2. ATORVASTATIN [Concomitant]
  3. ASPIRIN [Concomitant]
  4. ISOSORBIDE MONONITRATE [Concomitant]

REACTIONS (10)
  - ACIDOSIS [None]
  - BLOOD GLUCOSE DECREASED [None]
  - GAIT DISTURBANCE [None]
  - HYPERKALAEMIA [None]
  - HYPOTENSION [None]
  - MULTIPLE DRUG OVERDOSE INTENTIONAL [None]
  - RENAL IMPAIRMENT [None]
  - VENOUS OXYGEN SATURATION DECREASED [None]
  - VISION BLURRED [None]
  - VOMITING [None]
